FAERS Safety Report 6302197-5 (Version None)
Quarter: 2009Q3

REPORT INFORMATION
  Report Type: 
  Country: None (occurrence: None)
  Receive Date: 20090810
  Receipt Date: 20090730
  Transmission Date: 20100115
  Serious: Yes (Hospitalization)
  Sender: FDA-Public Use
  Company Number: US-BIOGENIDEC-2009BI023950

PATIENT
  Age: 59 Year
  Sex: Female
  Weight: 98 kg

DRUGS (1)
  1. TYSABRI [Suspect]
     Indication: MULTIPLE SCLEROSIS
     Route: 042
     Dates: start: 20070829

REACTIONS (4)
  - GENERAL SYMPTOM [None]
  - INFECTION [None]
  - OEDEMA PERIPHERAL [None]
  - OSTEOARTHRITIS [None]
